FAERS Safety Report 8150018-0 (Version None)
Quarter: 2012Q1

REPORT INFORMATION
  Report Type: 
  Country: None (occurrence: None)
  Receive Date: 20120218
  Receipt Date: 20120207
  Transmission Date: 20120608
  Serious: Yes (Hospitalization, Other)
  Sender: FDA-Public Use
  Company Number: US-BRISTOL-MYERS SQUIBB COMPANY-16387383

PATIENT
  Age: 48 Year
  Sex: Female
  Weight: 55 kg

DRUGS (9)
  1. SPRYCEL [Suspect]
     Indication: ACUTE LYMPHOCYTIC LEUKAEMIA
     Dosage: DOSE HELD D5 D6,7 8 ALSO TAKEN 600MG (LAST11JAN2012) LAST DOSE ON 14DEC2011
     Route: 048
     Dates: start: 20111205
  2. METHOTREXATE [Suspect]
     Indication: ACUTE LYMPHOCYTIC LEUKAEMIA
     Dosage: LAST:28JAN2011 ALSO TAKEN 12MG(LAST DOSE ON 06DEC11)
     Route: 042
     Dates: start: 20111205
  3. DOXORUBICIN HCL [Suspect]
     Indication: ACUTE LYMPHOCYTIC LEUKAEMIA
     Dosage: LAST DOSE ON 08DEC2011
     Route: 042
     Dates: start: 20111205
  4. DEXAMETHASONE [Suspect]
     Indication: ACUTE LYMPHOCYTIC LEUKAEMIA
     Dosage: LAST DOSE ON 08DEC2011
     Route: 042
     Dates: start: 20111205
  5. LEUCOVORIN CALCIUM [Suspect]
     Indication: ACUTE LYMPHOCYTIC LEUKAEMIA
     Dosage: LAST DOSE ON 30DEC11
     Route: 042
     Dates: start: 20111205
  6. VINCRISTINE SULFATE [Suspect]
     Indication: ACUTE LYMPHOCYTIC LEUKAEMIA
     Dosage: LAST DOSE ON 8DEC11 RECEIVED 4DOSE ON DEC8
     Dates: start: 20111205
  7. CYCLOPHOSPHAMIDE [Suspect]
     Indication: ACUTE LYMPHOCYTIC LEUKAEMIA
     Dosage: LAST DOSE ON 07DEC2011
     Route: 042
     Dates: start: 20111205
  8. CYTARABINE [Suspect]
     Indication: ACUTE LYMPHOCYTIC LEUKAEMIA
     Dosage: ALSO TAKEN 100MG(LAST12DEC2011) LAST DOSE:31DEC11
     Route: 042
     Dates: start: 20111205
  9. MESNA [Suspect]
     Indication: ACUTE LYMPHOCYTIC LEUKAEMIA
     Dosage: LAST DOSE ON 07DEC11
     Route: 042
     Dates: start: 20111205

REACTIONS (3)
  - BLOOD BILIRUBIN INCREASED [None]
  - FEBRILE NEUTROPENIA [None]
  - ALANINE AMINOTRANSFERASE INCREASED [None]
